FAERS Safety Report 5031438-X (Version None)
Quarter: 2006Q2

REPORT INFORMATION
  Report Type: 
  Country: None (occurrence: None)
  Receive Date: 20060616
  Receipt Date: 20060606
  Transmission Date: 20061013
  Serious: Yes (Other)
  Sender: FDA-Public Use
  Company Number: US200604004797

PATIENT
  Sex: Male

DRUGS (3)
  1. GEMZAR [Suspect]
     Indication: NON-SMALL CELL LUNG CANCER
     Dosage: 1000 MG/M2, INTRAVENOUS
     Route: 042
     Dates: start: 20060313
  2. CARBOPLATIN [Concomitant]
  3. AVASTIN [Concomitant]

REACTIONS (1)
  - THROMBOCYTHAEMIA [None]
